FAERS Safety Report 8292004-6 (Version None)
Quarter: 2012Q2

REPORT INFORMATION
  Report Type: 
  Country: None (occurrence: None)
  Receive Date: 20120417
  Receipt Date: 20120410
  Transmission Date: 20120825
  Serious: Yes (Other)
  Sender: FDA-Public Use
  Company Number: US-US-EMD SERONO, INC.-7125870

PATIENT
  Sex: Female
  Weight: 71 kg

DRUGS (7)
  1. REBIF [Suspect]
     Indication: MULTIPLE SCLEROSIS
     Dates: start: 20041108, end: 20051115
  2. AMPYRA [Concomitant]
     Indication: GAIT DISTURBANCE
  3. ZOLOFT [Concomitant]
     Indication: DEPRESSION
  4. ARICEPT [Concomitant]
     Indication: COGNITIVE DISORDER
  5. ZOLOFT [Concomitant]
     Indication: SLEEP DISORDER
  6. NUVIGIL [Concomitant]
     Indication: LIMB DISCOMFORT
  7. REBIF [Suspect]
     Route: 058
     Dates: start: 20060227

REACTIONS (1)
  - BREAST CANCER [None]
